FAERS Safety Report 4317306-7 (Version None)
Quarter: 2004Q1

REPORT INFORMATION
  Report Type: 
  Country: None (occurrence: None)
  Receive Date: 20040315
  Receipt Date: 20040315
  Transmission Date: 20041129
  Serious: Yes (Other)
  Sender: FDA-Public Use
  Company Number: None

PATIENT
  Sex: Female
  Weight: 120.2032 kg

DRUGS (3)
  1. IMDUR [Suspect]
     Indication: BONE DISORDER
  2. IMDUR [Suspect]
     Indication: CORONARY ARTERY DISEASE
  3. IMDUR [Suspect]
     Indication: HYPERTENSION

REACTIONS (2)
  - NAUSEA [None]
  - RASH [None]
